FAERS Safety Report 5065480-X (Version None)
Quarter: 2006Q3

REPORT INFORMATION
  Report Type: 
  Country: None (occurrence: None)
  Receive Date: 20060725
  Receipt Date: 20060712
  Transmission Date: 20061208
  Serious: Yes (Hospitalization)
  Sender: FDA-Public Use
  Company Number: 2006082789

PATIENT
  Age: 64 Year
  Sex: Male
  Weight: 69.3 kg

DRUGS (7)
  1. SUTENT [Suspect]
     Indication: RENAL CELL CARCINOMA STAGE UNSPECIFIED
     Dosage: 50 MG (50 MG, DAILY - INTERVAL: EVERY DAY), ORAL
     Route: 048
     Dates: start: 20060530
  2. CANDESARTAN CILEXETIL (CANDESARTAN CILEXETIL) [Concomitant]
  3. FLUNITRAZEPAM (FLUNITRAZEPAM) [Concomitant]
  4. BROTIZOLAM (BROTIZOLAM) [Concomitant]
  5. ZOPICLONE (ZOPICLONE) [Concomitant]
  6. DIFLUPREDNATE (DIFLUPREDNATE) [Concomitant]
  7. SENNA LEAL (SENNA LEAF) [Concomitant]

REACTIONS (4)
  - ANAL FISTULA [None]
  - CONDITION AGGRAVATED [None]
  - HAEMORRHOIDAL HAEMORRHAGE [None]
  - PLATELET COUNT DECREASED [None]
